FAERS Safety Report 7069219-8 (Version None)
Quarter: 2010Q4

REPORT INFORMATION
  Report Type: 
  Country: None (occurrence: None)
  Receive Date: 20101028
  Receipt Date: 20101020
  Transmission Date: 20110411
  Serious: Yes (Life-Threatening)
  Sender: FDA-Public Use
  Company Number: B0681632A

PATIENT
  Age: 68 Year
  Sex: Female

DRUGS (1)
  1. AUGMENTIN '125' [Suspect]
     Indication: PROPHYLAXIS
     Dosage: .1ML PER DAY
     Route: 040
     Dates: start: 20101001, end: 20101001

REACTIONS (1)
  - ANAPHYLACTIC SHOCK [None]
